FAERS Safety Report 4659232-X (Version None)
Quarter: 2005Q2

REPORT INFORMATION
  Report Type: 
  Country: None (occurrence: None)
  Receive Date: 20050511
  Receipt Date: 20050427
  Transmission Date: 20051028
  Serious: Yes (Hospitalization, Other)
  Sender: FDA-Public Use
  Company Number: 2005SE01902

PATIENT
  Age: 16548 Day
  Sex: Female
  Weight: 89 kg

DRUGS (3)
  1. ZOLADEX [Suspect]
     Route: 058
     Dates: start: 20040119, end: 20050309
  2. ZOLADEX [Suspect]
     Route: 058
     Dates: start: 20050309, end: 20050420
  3. NOLVADEX [Suspect]
     Route: 048
     Dates: start: 20040119, end: 20050420

REACTIONS (5)
  - CHOLESTASIS [None]
  - CHRONIC HEPATITIS [None]
  - HEPATITIS [None]
  - HEPATITIS ACUTE [None]
  - HEPATOCELLULAR DAMAGE [None]
